FAERS Safety Report 18974918 (Version 4)
Quarter: 2021Q2

REPORT INFORMATION
  Report Type: Report from Study
  Country: US (occurrence: US)
  Receive Date: 20210305
  Receipt Date: 20210402
  Transmission Date: 20210717
  Serious: No
  Sender: FDA-Public Use
  Company Number: US-JAZZ-2021-US-003855

PATIENT
  Sex: Male

DRUGS (6)
  1. XYWAV [Suspect]
     Active Substance: CALCIUM OXYBATE\MAGNESIUM OXYBATE\POTASSIUM OXYBATE\SODIUM OXYBATE
     Indication: NARCOLEPSY
     Dosage: 2.25 GRAM, BID
     Route: 048
     Dates: start: 20210225, end: 20210227
  2. ASPERCREME [LIDOCAINE] [Concomitant]
     Active Substance: LIDOCAINE
     Indication: ARTHRALGIA
  3. ASPERCREME [LIDOCAINE] [Concomitant]
     Active Substance: LIDOCAINE
     Indication: PAIN IN EXTREMITY
  4. SALONPAS [CAMPHOR;GLYCOL SALICYLATE;MENTHOL;METHYL SALICYLATE;THYMOL] [Concomitant]
     Indication: ARTHRALGIA
  5. SALONPAS [CAMPHOR;GLYCOL SALICYLATE;MENTHOL;METHYL SALICYLATE;THYMOL] [Concomitant]
     Indication: PAIN IN EXTREMITY
  6. XYWAV [Suspect]
     Active Substance: CALCIUM OXYBATE\MAGNESIUM OXYBATE\POTASSIUM OXYBATE\SODIUM OXYBATE
     Dosage: 1 GRAM, BID
     Route: 048
     Dates: start: 2021

REACTIONS (9)
  - Balance disorder [Recovering/Resolving]
  - Diarrhoea [Recovered/Resolved]
  - Therapeutic response unexpected [Unknown]
  - Wrong technique in product usage process [Unknown]
  - Dry mouth [Unknown]
  - Inappropriate schedule of product administration [Unknown]
  - Pre-existing condition improved [Unknown]
  - Faeces hard [Recovering/Resolving]
  - Heart rate decreased [Recovering/Resolving]

NARRATIVE: CASE EVENT DATE: 2021
